FAERS Safety Report 8961325 (Version 6)
Quarter: 2013Q4

REPORT INFORMATION
  Report Type: Report from Study
  Country: GR (occurrence: GR)
  Receive Date: 20121213
  Receipt Date: 20131129
  Transmission Date: 20140711
  Serious: Yes (Death, Life-Threatening, Hospitalization, Other)
  Sender: FDA-Public Use
  Company Number: GR-JNJFOC-20121202450

PATIENT
  Age: 68 Year
  Sex: Male
  Weight: 52.1 kg

DRUGS (9)
  1. ABIRATERONE [Suspect]
     Route: 048
  2. ABIRATERONE [Suspect]
     Indication: PROSTATE CANCER METASTATIC
     Route: 048
     Dates: start: 20121127, end: 20121202
  3. PREDNISOLONE [Suspect]
     Indication: PROSTATE CANCER METASTATIC
     Route: 048
     Dates: start: 20121127, end: 20121203
  4. LONALGAL [Concomitant]
     Indication: PAIN
     Route: 048
  5. LONARID-N [Concomitant]
     Indication: PAIN
     Route: 048
  6. MATRIFEN [Concomitant]
     Route: 062
  7. LEUPROLIDE ACETATE [Concomitant]
     Indication: PROSTATE CANCER METASTATIC
     Route: 058
     Dates: start: 201204
  8. DOCETAXEL [Concomitant]
     Indication: CHEMOTHERAPY
     Route: 042
     Dates: start: 20121112
  9. ZOMETA [Concomitant]
     Indication: CHEMOTHERAPY
     Route: 042
     Dates: start: 20120605

REACTIONS (1)
  - Sepsis [Fatal]
